FAERS Safety Report 8393110-8 (Version None)
Quarter: 2012Q2

REPORT INFORMATION
  Report Type: 
  Country: None (occurrence: None)
  Receive Date: 20120529
  Receipt Date: 20120428
  Transmission Date: 20120825
  Serious: No
  Sender: FDA-Public Use
  Company Number: US-ABBOTT-12P-163-0931357-00

PATIENT
  Age: 68 Year
  Sex: Male
  Weight: 78.088 kg

DRUGS (3)
  1. TRAMADOL HCL [Concomitant]
     Indication: ARTHRITIS
  2. SYNTHROID [Concomitant]
     Indication: HYPOTHYROIDISM
     Route: 048
  3. ANDROGEL [Suspect]
     Indication: BLOOD TESTOSTERONE DECREASED
     Route: 061
     Dates: start: 20120309, end: 20120427

REACTIONS (1)
  - PROSTATIC SPECIFIC ANTIGEN INCREASED [None]
